FAERS Safety Report 10880496 (Version 1)
Quarter: 2015Q1

REPORT INFORMATION
  Report Type: Spontaneous
  Country: US (occurrence: US)
  Receive Date: 20150303
  Receipt Date: 20150303
  Transmission Date: 20150721
  Serious: No
  Sender: FDA-Public Use
  Company Number: US-EMD SERONO-8013477

PATIENT
  Sex: Female

DRUGS (1)
  1. REBIF [Suspect]
     Active Substance: INTERFERON BETA-1A
     Indication: MULTIPLE SCLEROSIS
     Route: 058
     Dates: start: 20150122

REACTIONS (5)
  - Depressed mood [Unknown]
  - Dizziness [Unknown]
  - Injection site erythema [Unknown]
  - Vision blurred [Unknown]
  - Chills [Unknown]
